FAERS Safety Report 13947068 (Version 1)
Quarter: 2017Q3

REPORT INFORMATION
  Report Type: Spontaneous
  Country: ES (occurrence: ES)
  Receive Date: 20170907
  Receipt Date: 20170907
  Transmission Date: 20171128
  Serious: Yes (Other)
  Sender: FDA-Public Use
  Company Number: PHHY2017ES129302

PATIENT
  Age: 83 Year
  Sex: Male

DRUGS (1)
  1. PROMETAX [Suspect]
     Active Substance: RIVASTIGMINE
     Indication: DEMENTIA
     Dosage: 4.6 MG QD (PATCH 5 (CM2), 9 MG RIVASTIGMINE BASE)
     Route: 062
     Dates: start: 20170404, end: 20170414

REACTIONS (3)
  - Hallucination [Recovered/Resolved]
  - Medication error [Recovered/Resolved]
  - Agitation [Recovered/Resolved]

NARRATIVE: CASE EVENT DATE: 20170404
